FAERS Safety Report 21738143 (Version 1)
Quarter: 2022Q4

REPORT INFORMATION
  Report Type: Spontaneous
  Country: US (occurrence: US)
  Receive Date: 20221216
  Receipt Date: 20221216
  Transmission Date: 20230112
  Serious: Yes (Other)
  Sender: FDA-Public Use
  Company Number: US-UCBSA-2022070122

PATIENT
  Sex: Male

DRUGS (3)
  1. NEUPRO [Suspect]
     Active Substance: ROTIGOTINE
     Indication: Restless legs syndrome
     Dosage: 2 MG
     Dates: start: 20190101
  2. NEUPRO [Suspect]
     Active Substance: ROTIGOTINE
     Dosage: 4 MG
     Dates: start: 202204
  3. NEUPRO [Suspect]
     Active Substance: ROTIGOTINE
     Dosage: 6 MG
     Dates: start: 202206

REACTIONS (2)
  - Obsessive-compulsive personality disorder [Unknown]
  - Overdose [Unknown]

NARRATIVE: CASE EVENT DATE: 20220401
